FAERS Safety Report 4859891-2 (Version None)
Quarter: 2005Q4

REPORT INFORMATION
  Report Type: 
  Country: None (occurrence: None)
  Receive Date: 20051215
  Receipt Date: 20051205
  Transmission Date: 20060501
  Serious: Yes (Life-Threatening, Hospitalization)
  Sender: FDA-Public Use
  Company Number: 05FRA0248

PATIENT
  Age: 64 Year
  Sex: Male

DRUGS (5)
  1. AGGRASTAT [Suspect]
     Indication: ACUTE CORONARY SYNDROME
     Dosage: 0.4 UG/KG/MIN X 30 MIN
     Dates: start: 20050819, end: 20050819
  2. AGGRASTAT [Suspect]
     Indication: ACUTE CORONARY SYNDROME
     Dosage: 0.1 UG/KG/MIN X 23 HOURS
     Dates: start: 20050819, end: 20050819
  3. ASPIRIN LYSINE (ACETYLSALICYLATE LYSINE (75 MILLIGRAM, POWDER) [Suspect]
     Indication: ACUTE CORONARY SYNDROME
     Dosage: 75 MG/DAILY
     Dates: start: 20050817
  4. ENOXAPARIN SODIUM [Suspect]
     Indication: ACUTE CORONARY SYNDROME
     Dosage: 0.8 ML/BID
     Dates: start: 20050817, end: 20050819
  5. CLOPIDOGREL BISULFATE [Suspect]
     Indication: ACUTE CORONARY SYNDROME
     Dosage: 75 MG/DAILY
     Dates: start: 20050817

REACTIONS (3)
  - CIRCULATORY COLLAPSE [None]
  - HAEMOGLOBIN DECREASED [None]
  - RETROPERITONEAL HAEMORRHAGE [None]
